FAERS Safety Report 19264941 (Version 3)
Quarter: 2022Q4

REPORT INFORMATION
  Report Type: Report from Study
  Country: AR (occurrence: AR)
  Receive Date: 20210517
  Receipt Date: 20221117
  Transmission Date: 20230112
  Serious: Yes (Hospitalization, Other)
  Sender: FDA-Public Use
  Company Number: NVSC2021AR108565

PATIENT
  Age: 70 Year
  Sex: Female

DRUGS (3)
  1. GLYCOPYRRONIUM\INDACATEROL [Suspect]
     Active Substance: GLYCOPYRRONIUM\INDACATEROL
     Indication: Chronic obstructive pulmonary disease
     Dosage: 1 DF, QD (STARTED 5 YEARS AGO AND STOPPED 2 YEARS AGO)
     Route: 065
  2. GLYCOPYRRONIUM\INDACATEROL [Suspect]
     Active Substance: GLYCOPYRRONIUM\INDACATEROL
     Indication: Dyspnoea
     Dosage: 0.5 MG, QD
     Route: 065
  3. GLYCOPYRRONIUM\INDACATEROL [Suspect]
     Active Substance: GLYCOPYRRONIUM\INDACATEROL
     Dosage: 1 X 110 MG/50, QD (APPROXIMATELY 7 TO 8 YEARS, IN PANDEMIC APPROXIMATELY FOR 3 MONTHS)

REACTIONS (12)
  - Lung neoplasm malignant [Recovered/Resolved]
  - Lung neoplasm malignant [Unknown]
  - Anaemia [Unknown]
  - Dyspnoea [Unknown]
  - Gait inability [Recovering/Resolving]
  - Abdominal discomfort [Unknown]
  - Feeling abnormal [Unknown]
  - Diarrhoea [Unknown]
  - Vomiting [Unknown]
  - Fear [Recovering/Resolving]
  - Fatigue [Recovering/Resolving]
  - Product availability issue [Unknown]

NARRATIVE: CASE EVENT DATE: 20191201
